FAERS Safety Report 5411354-1 (Version None)
Quarter: 2007Q3

REPORT INFORMATION
  Report Type: 
  Country: None (occurrence: None)
  Receive Date: 20070810
  Receipt Date: 20070730
  Transmission Date: 20080115
  Serious: Yes (Hospitalization, Other)
  Sender: FDA-Public Use
  Company Number: US-MERCK-0707USA01295

PATIENT
  Age: 40 Year
  Sex: Female

DRUGS (3)
  1. PRINIVIL [Suspect]
     Indication: BLOOD PRESSURE INCREASED
     Route: 048
     Dates: start: 20061020, end: 20061030
  2. THEOPHYLLINE [Concomitant]
     Route: 065
  3. ALBUTEROL [Concomitant]
     Route: 065

REACTIONS (16)
  - ARTHRALGIA [None]
  - CYSTITIS [None]
  - DIARRHOEA [None]
  - HAEMATEMESIS [None]
  - HAEMORRHAGE [None]
  - INFECTION [None]
  - KIDNEY INFECTION [None]
  - MUSCLE SPASMS [None]
  - NAUSEA [None]
  - OBSTRUCTION [None]
  - PRESYNCOPE [None]
  - RENAL FAILURE ACUTE [None]
  - RENAL PAIN [None]
  - RESPIRATORY TRACT INFECTION [None]
  - SOMNOLENCE [None]
  - VOMITING [None]
